FAERS Safety Report 24175389 (Version 3)
Quarter: 2024Q3

REPORT INFORMATION
  Report Type: Report from Study
  Country: US (occurrence: US)
  Receive Date: 20240805
  Receipt Date: 20240829
  Transmission Date: 20241017
  Serious: No
  Sender: ALEXION PHARMACEUTICALS
  Company Number: US-AstraZeneca-CH-00676772A

PATIENT
  Sex: Male

DRUGS (1)
  1. STRENSIQ [Suspect]
     Active Substance: ASFOTASE ALFA
     Indication: Hypophosphatasia
     Dosage: 52 MILLIGRAM, TIW
     Route: 058
     Dates: start: 20240720, end: 20240805

REACTIONS (4)
  - Fear of injection [Not Recovered/Not Resolved]
  - Crying [Unknown]
  - Panic attack [Not Recovered/Not Resolved]
  - Injection site erythema [Not Recovered/Not Resolved]
